FAERS Safety Report 7268192-7 (Version None)
Quarter: 2011Q1

REPORT INFORMATION
  Report Type: 
  Country: None (occurrence: None)
  Receive Date: 20110121
  Receipt Date: 20101119
  Transmission Date: 20110831
  Serious: Yes (Other)
  Sender: FDA-Public Use
  Company Number: 2010BI035662

PATIENT
  Age: 66 Year
  Sex: Female
  Weight: 54.4 kg

DRUGS (13)
  1. RITUXIMAB [Concomitant]
  2. OMEPRAL [Concomitant]
  3. CLARITH [Concomitant]
  4. MARZULENE [Concomitant]
  5. HYDROCODONE BITARTRATE [Concomitant]
  6. OTHER ANALGESICS AND ANTIPYRETICS [Concomitant]
  7. ZEVALIN [Suspect]
     Indication: FOLLICLE CENTRE LYMPHOMA, FOLLICULAR GRADE I, II, III STAGE IV
     Dosage: 805.12 MBQ;1X;IV
     Route: 042
     Dates: start: 20100511, end: 20100518
  8. ALLELOCK [Concomitant]
  9. MIYA BM [Concomitant]
  10. GASTER D [Concomitant]
  11. ETOPOSIDE [Concomitant]
  12. ANITHISTAMINES [Concomitant]
  13. VP-16 [DEXAMETHASONE REGIMMEN [VP-16] -DEXAMETHASONE REGIMEN [Concomitant]

REACTIONS (3)
  - WHITE BLOOD CELL COUNT DECREASED [None]
  - ANAEMIA [None]
  - PLATELET COUNT DECREASED [None]
